FAERS Safety Report 10094659 (Version 1)
Quarter: 2014Q2

REPORT INFORMATION
  Report Type: Spontaneous
  Country: US (occurrence: None)
  Receive Date: 20140418
  Receipt Date: 20140418
  Transmission Date: 20141212
  Serious: Yes (Other)
  Sender: FDA-Public Use
  Company Number: US-ZYDUS-003056

PATIENT
  Age: 51 Year
  Sex: Female

DRUGS (3)
  1. GABAPENTINE [Suspect]
  2. GLIBENCLAMIDE [Suspect]
  3. METFORMIN (METFORMIN) [Suspect]

REACTIONS (3)
  - Hepatotoxicity [None]
  - Transaminases increased [None]
  - Aspartate aminotransferase increased [None]
